FAERS Safety Report 4685117-9 (Version None)
Quarter: 2005Q2

REPORT INFORMATION
  Report Type: 
  Country: None (occurrence: None)
  Receive Date: 20050608
  Receipt Date: 20050601
  Transmission Date: 20051028
  Serious: Yes (Other)
  Sender: FDA-Public Use
  Company Number: US-BRISTOL-MYERS SQUIBB COMPANY-12990446

PATIENT
  Age: 79 Year
  Sex: Male

DRUGS (5)
  1. TEQUIN [Suspect]
     Dates: start: 20050101, end: 20050101
  2. CARDIZEM [Concomitant]
  3. ZOCOR [Concomitant]
  4. LASIX [Concomitant]
  5. SYNTHROID [Concomitant]

REACTIONS (1)
  - BLOOD GLUCOSE INCREASED [None]
